FAERS Safety Report 6905318-6 (Version None)
Quarter: 2010Q3

REPORT INFORMATION
  Report Type: 
  Country: None (occurrence: None)
  Receive Date: 20100802
  Receipt Date: 20100719
  Transmission Date: 20110219
  Serious: Yes (Hospitalization)
  Sender: FDA-Public Use
  Company Number: UTC-001261

PATIENT
  Age: 6 Year
  Sex: Female
  Weight: 17.7 kg

DRUGS (7)
  1. REMODULIN [Suspect]
     Dosage: 52.848 UG/KG (0.0367 UG/KG, 1 IN 1 MIN), SUBCUTANEOUS
     Route: 058
     Dates: start: 20090924
  2. PROTONIX [Concomitant]
  3. REVATIO [Concomitant]
  4. ENALAPRIL MALEATE [Concomitant]
  5. MIRALAX [Concomitant]
  6. TRACLEER [Concomitant]
  7. KEPPRA [Concomitant]

REACTIONS (1)
  - CONVULSION [None]
